FAERS Safety Report 8511269-6 (Version None)
Quarter: 2012Q3

REPORT INFORMATION
  Report Type: 
  Country: None (occurrence: None)
  Receive Date: 20120716
  Receipt Date: 20120629
  Transmission Date: 20120928
  Serious: Yes (Death, Hospitalization)
  Sender: FDA-Public Use
  Company Number: JP-CELGENEUS-087-50794-12071437

PATIENT
  Sex: Female
  Weight: 47 kg

DRUGS (20)
  1. VIDAZA [Suspect]
     Dosage: 75 MILLIGRAM/SQ. METER
     Route: 041
     Dates: start: 20111128, end: 20111204
  2. METFORMIN HCL [Concomitant]
     Route: 065
  3. AMARYL [Concomitant]
     Route: 065
  4. NOVORAPID [Concomitant]
     Route: 065
     Dates: start: 20111128
  5. PREDNISOLONE [Concomitant]
     Route: 065
     Dates: start: 20111128
  6. VANCOMYCIN [Concomitant]
     Route: 065
     Dates: start: 20120113, end: 20120127
  7. ZETIA [Concomitant]
     Route: 065
  8. DORIPENEM MONOHYDRATE [Concomitant]
     Route: 065
     Dates: start: 20120121, end: 20120203
  9. VIDAZA [Suspect]
     Dosage: 75 MILLIGRAM/SQ. METER
     Route: 058
     Dates: start: 20110822, end: 20110828
  10. MIGLITOL [Concomitant]
     Route: 065
  11. OLMESARTAN MEDOXOMIL [Concomitant]
     Route: 065
  12. MOBENZOCIN [Concomitant]
     Route: 065
     Dates: start: 20111025, end: 20111027
  13. LYRICA [Concomitant]
     Route: 065
     Dates: start: 20111128
  14. MEROPENEM [Concomitant]
     Route: 065
     Dates: start: 20111220, end: 20111226
  15. VIDAZA [Suspect]
     Dosage: 75 MILLIGRAM/SQ. METER
     Route: 041
     Dates: start: 20111011, end: 20111017
  16. MOBENZOCIN [Concomitant]
     Route: 065
     Dates: start: 20111216, end: 20111219
  17. NEUTROGIN [Concomitant]
     Route: 065
     Dates: start: 20111226, end: 20120103
  18. ATELEC [Concomitant]
     Route: 065
  19. HYDREA [Concomitant]
     Route: 065
  20. PAZUCROSS [Concomitant]
     Route: 065
     Dates: start: 20120107, end: 20120120

REACTIONS (5)
  - PLATELET COUNT DECREASED [None]
  - WHITE BLOOD CELL COUNT DECREASED [None]
  - CELLULITIS [None]
  - PNEUMONIA [None]
  - ANAEMIA [None]
